FAERS Safety Report 5278740-4 (Version None)
Quarter: 2007Q1

REPORT INFORMATION
  Report Type: 
  Country: None (occurrence: None)
  Receive Date: 20070328
  Receipt Date: 20070316
  Transmission Date: 20070707
  Serious: Yes (Other)
  Sender: FDA-Public Use
  Company Number: JP-SANOFI-SYNTHELABO-A01200610146

PATIENT
  Sex: Female
  Weight: 59 kg

DRUGS (10)
  1. NITRODERM [Concomitant]
     Indication: ANGINA PECTORIS
     Dates: start: 20051210, end: 20070313
  2. MERISLON [Concomitant]
     Indication: DIZZINESS
     Route: 048
     Dates: start: 20051210, end: 20070313
  3. LAC-B [Concomitant]
     Indication: CONSTIPATION
     Route: 048
     Dates: start: 20051210, end: 20070313
  4. FERROMIA [Concomitant]
     Indication: IRON DEFICIENCY ANAEMIA
     Route: 048
     Dates: start: 20051210, end: 20060303
  5. SEROTONE [Concomitant]
     Indication: PREMEDICATION
     Route: 041
     Dates: start: 20060220, end: 20060220
  6. OXALIPLATIN [Suspect]
     Indication: LARGE INTESTINE CARCINOMA
     Route: 041
     Dates: start: 20060220, end: 20060220
  7. FLUOROURACIL [Concomitant]
     Dosage: 600MG/BODY=400MG/M2 IN BOLUS THEN 900MG/BODY=600MG/M2 AS CONTINUOUS INFUSION ON DAY 1 + 2
     Route: 041
     Dates: start: 20060220, end: 20060221
  8. ISOVORIN [Concomitant]
     Route: 041
     Dates: start: 20060220, end: 20060221
  9. DECADRON [Concomitant]
     Indication: PREMEDICATION
     Route: 041
     Dates: start: 20060220, end: 20060220
  10. DAI-KENCHU-TO [Concomitant]
     Indication: INTESTINAL OBSTRUCTION
     Route: 048
     Dates: start: 20051210, end: 20060303

REACTIONS (1)
  - CEREBRAL INFARCTION [None]
